FAERS Safety Report 5759395-9 (Version None)
Quarter: 2008Q2

REPORT INFORMATION
  Report Type: 
  Country: None (occurrence: None)
  Receive Date: 20080604
  Receipt Date: 20080604
  Transmission Date: 20081010
  Serious: No
  Sender: FDA-Public Use
  Company Number: None

PATIENT
  Age: 64 Year
  Sex: Male
  Weight: 99.3377 kg

DRUGS (1)
  1. ALLEGRA D 24 HOUR [Suspect]
     Indication: MIDDLE EAR EFFUSION
     Dosage: ONE TABLET ONCE A DAY MOUTH
     Route: 048
     Dates: start: 20080428

REACTIONS (1)
  - URINE OUTPUT DECREASED [None]
